FAERS Safety Report 19733606 (Version 4)
Quarter: 2022Q1

REPORT INFORMATION
  Report Type: Spontaneous
  Country: US (occurrence: US)
  Receive Date: 20210823
  Receipt Date: 20220115
  Transmission Date: 20220423
  Serious: No
  Sender: FDA-Public Use
  Company Number: US-GLAXOSMITHKLINE-US2021AMR175892

PATIENT
  Sex: Female

DRUGS (10)
  1. BENLYSTA [Suspect]
     Active Substance: BELIMUMAB
     Indication: Systemic lupus erythematosus
     Dosage: 200 MG/ML, WE
     Route: 058
  2. BENLYSTA [Suspect]
     Active Substance: BELIMUMAB
     Indication: Systemic lupus erythematosus
     Dosage: 200 MG/ML, WE, ONCE WEEKLY
     Route: 058
  3. BENLYSTA [Suspect]
     Active Substance: BELIMUMAB
  4. BENLYSTA [Suspect]
     Active Substance: BELIMUMAB
     Indication: Systemic lupus erythematosus
     Dosage: 200 MG/ML, WE
     Route: 058
  5. BENLYSTA [Suspect]
     Active Substance: BELIMUMAB
  6. BENLYSTA [Suspect]
     Active Substance: BELIMUMAB
  7. BENLYSTA [Suspect]
     Active Substance: BELIMUMAB
     Indication: Systemic lupus erythematosus
     Dosage: 200 MG/ML, WE
     Route: 058
  8. BENLYSTA [Suspect]
     Active Substance: BELIMUMAB
  9. BENLYSTA [Suspect]
     Active Substance: BELIMUMAB
  10. BENLYSTA [Suspect]
     Active Substance: BELIMUMAB

REACTIONS (12)
  - Anxiety [Unknown]
  - Overweight [Unknown]
  - Injection site pain [Unknown]
  - Fear of injection [Unknown]
  - Respiratory tract congestion [Unknown]
  - Cough [Unknown]
  - Nasopharyngitis [Unknown]
  - Fatigue [Unknown]
  - Device use error [Unknown]
  - Exposure via skin contact [Unknown]
  - COVID-19 [Unknown]
  - Inappropriate schedule of product administration [Unknown]
